FAERS Safety Report 4779312-8 (Version None)
Quarter: 2005Q3

REPORT INFORMATION
  Report Type: 
  Country: None (occurrence: None)
  Receive Date: 20050914
  Receipt Date: 20050711
  Transmission Date: 20060218
  Serious: Yes (Other)
  Sender: FDA-Public Use
  Company Number: 410702

PATIENT
  Sex: Female

DRUGS (3)
  1. BONIVA [Suspect]
     Dosage: ORAL
     Route: 048
     Dates: start: 20050615
  2. LIPITOR [Concomitant]
  3. SYNTHROID [Concomitant]

REACTIONS (2)
  - ARTHRALGIA [None]
  - BONE PAIN [None]
